FAERS Safety Report 8873190 (Version 1)
Quarter: 2012Q4

REPORT INFORMATION
  Report Type: Report from Study
  Country: US (occurrence: US)
  Receive Date: 20121030
  Receipt Date: 20121030
  Transmission Date: 20130627
  Serious: No
  Sender: FDA-Public Use
  Company Number: US-ABBOTT-11P-163-0867493-00

PATIENT
  Sex: Female
  Weight: 95.34 kg

DRUGS (4)
  1. LUPRON DEPOT 3.75 MG [Suspect]
     Indication: ENDOMETRIOSIS
     Dates: start: 201109
  2. COPAXONE [Concomitant]
     Indication: MULTIPLE SCLEROSIS
  3. UNKNOWN MEDICATION [Concomitant]
     Indication: HOT FLUSH
     Dates: start: 201109
  4. UNKNOWN MEDICATION [Concomitant]
     Indication: PROPHYLAXIS

REACTIONS (2)
  - Thirst [Recovering/Resolving]
  - Pollakiuria [Recovering/Resolving]
